FAERS Safety Report 12834846 (Version 1)
Quarter: 2016Q4

REPORT INFORMATION
  Report Type: Report from Study
  Country: US (occurrence: US)
  Receive Date: 20161010
  Receipt Date: 20161010
  Transmission Date: 20170207
  Serious: Yes (Hospitalization)
  Sender: FDA-Public Use
  Company Number: US-EXELIXIS-XL18416007220

PATIENT
  Age: 70 Year
  Sex: Male

DRUGS (4)
  1. IPILIMUMAB [Suspect]
     Active Substance: IPILIMUMAB
     Indication: PROSTATE CANCER METASTATIC
     Dosage: 73 MG, UNK
     Route: 042
     Dates: start: 20160615, end: 20160817
  2. XL184 [Suspect]
     Active Substance: CABOZANTINIB
     Indication: PROSTATE CANCER METASTATIC
     Dosage: 40 MG, QD
     Route: 048
     Dates: start: 20160615, end: 2016
  3. NIVOLUMAB [Suspect]
     Active Substance: NIVOLUMAB
     Indication: PROSTATE CANCER METASTATIC
     Dosage: 220 MG, UNK
     Route: 042
     Dates: start: 20160615, end: 20160817
  4. XL184 [Suspect]
     Active Substance: CABOZANTINIB
     Dosage: 20 MG, QD
     Route: 048
     Dates: start: 2016, end: 20160819

REACTIONS (1)
  - Confusional state [Recovered/Resolved]

NARRATIVE: CASE EVENT DATE: 20160826
